FAERS Safety Report 11342900 (Version 1)
Quarter: 2015Q3

REPORT INFORMATION
  Report Type: Report from Study
  Country: US (occurrence: US)
  Receive Date: 20150805
  Receipt Date: 20150805
  Transmission Date: 20151125
  Serious: No
  Sender: FDA-Public Use
  Company Number: US-AMGEN-USASP2015066030

PATIENT
  Age: 26 Year
  Sex: Female

DRUGS (1)
  1. NPLATE [Suspect]
     Active Substance: ROMIPLOSTIM
     Indication: PRODUCT USED FOR UNKNOWN INDICATION
     Dosage: 350 MUG, QWK
     Route: 065

REACTIONS (9)
  - Platelet count decreased [Unknown]
  - Injection site pain [Unknown]
  - Pyrexia [Unknown]
  - Headache [Unknown]
  - Pain [Unknown]
  - Somnolence [Unknown]
  - Confusional state [Unknown]
  - Memory impairment [Unknown]
  - Fatigue [Unknown]
